FAERS Safety Report 7512582-1 (Version None)
Quarter: 2011Q2

REPORT INFORMATION
  Report Type: 
  Country: None (occurrence: None)
  Receive Date: 20110531
  Receipt Date: 20110526
  Transmission Date: 20111010
  Serious: Yes (Hospitalization)
  Sender: FDA-Public Use
  Company Number: IT-ROCHE-779291

PATIENT
  Sex: Male

DRUGS (4)
  1. FLUOROURACIL [Concomitant]
     Dosage: UNITS REPORTED AS MG/SM
     Dates: start: 20100908, end: 20100922
  2. AVASTIN [Suspect]
     Indication: COLON CANCER
     Dosage: FREQUENCY: OD.
     Route: 042
     Dates: start: 20100908, end: 20100922
  3. IRINOTECAN HYDROCHLORIDE [Concomitant]
     Dosage: UNITS REPORTED AS: MG/SM
     Route: 042
     Dates: start: 20100908, end: 20100922
  4. LEUCOVORIN CALCIUM [Concomitant]
     Dosage: UNITS REPORTED AS: MG/SM
     Route: 042
     Dates: start: 20100908, end: 20100922

REACTIONS (1)
  - ENTERITIS [None]
